FAERS Safety Report 5710162-1 (Version None)
Quarter: 2008Q2

REPORT INFORMATION
  Report Type: 
  Country: None (occurrence: None)
  Receive Date: 20080418
  Receipt Date: 20071227
  Transmission Date: 20081010
  Serious: No
  Sender: FDA-Public Use
  Company Number: US-ASTRAZENECA-2007UW29012

PATIENT
  Age: 69 Year
  Sex: Female
  Weight: 99.8 kg

DRUGS (9)
  1. TOPROL-XL [Suspect]
     Indication: HYPERTENSION
     Dosage: 1/2 TABL, BID
     Route: 048
     Dates: start: 20071224
  2. XANAX [Concomitant]
  3. DIOVAN HCT [Concomitant]
  4. LESCOL [Concomitant]
  5. ZETIA [Concomitant]
  6. ASPIRIN [Concomitant]
  7. NORVASC [Concomitant]
  8. PROTONIX [Concomitant]
  9. SINGULAIR [Concomitant]

REACTIONS (5)
  - BURNING SENSATION [None]
  - DIZZINESS [None]
  - ERYTHEMA [None]
  - OEDEMA PERIPHERAL [None]
  - PRURITUS [None]
